FAERS Safety Report 19414312 (Version 1)
Quarter: 2021Q2

REPORT INFORMATION
  Report Type: Spontaneous
  Country: FR (occurrence: FR)
  Receive Date: 20210615
  Receipt Date: 20210615
  Transmission Date: 20210717
  Serious: No
  Sender: FDA-Public Use
  Company Number: FR-UCBSA-2021028371

PATIENT
  Sex: Female

DRUGS (2)
  1. NEUPRO [Suspect]
     Active Substance: ROTIGOTINE
     Indication: RESTLESS LEGS SYNDROME
     Dosage: 1 AND A HALF PATCHES OF 2MG
     Route: 062
     Dates: start: 202104
  2. NEUPRO [Suspect]
     Active Substance: ROTIGOTINE
     Dosage: 8MG
     Route: 062
     Dates: start: 202104

REACTIONS (4)
  - Visual impairment [Recovered/Resolved]
  - Overdose [Unknown]
  - Product adhesion issue [Unknown]
  - Wrong technique in product usage process [Unknown]

NARRATIVE: CASE EVENT DATE: 2021
